FAERS Safety Report 6282131 (Version 2)
Quarter: 2019Q1

REPORT INFORMATION
  Report Type: Spontaneous
  Country: FR (occurrence: FR)
  Receive Date: 20070406
  Receipt Date: 20190326
  Transmission Date: 20190418
  Serious: Yes (Death, Life-Threatening)
  Sender: FDA-Public Use
  Company Number: FR-AVENTIS-200711183FR

PATIENT
  Age: 81 Year
  Sex: Male

DRUGS (6)
  1. LASILIX [Suspect]
     Active Substance: FUROSEMIDE
     Indication: PRODUCT USED FOR UNKNOWN INDICATION
     Dosage: 40 MG,QD
     Route: 042
     Dates: start: 20070317, end: 20070320
  2. SALBUTAMOL SULFATE [Suspect]
     Active Substance: ALBUTEROL SULFATE
     Dosage: 5 MG,TID
     Route: 055
     Dates: start: 20070317, end: 20070320
  3. AMOXICILLIN SODIUM/POTASSIUM CLAVULANATE [Suspect]
     Active Substance: AMOXICILLIN\CLAVULANATE POTASSIUM
     Dosage: 3 DF, Q4D
     Route: 042
     Dates: start: 20070317, end: 20070320
  4. DIGOXIN. [Suspect]
     Active Substance: DIGOXIN
     Dosage: 0.5 DF, TID
     Route: 042
     Dates: start: 20070317, end: 20070320
  5. LOVENOX [Suspect]
     Active Substance: ENOXAPARIN SODIUM
     Indication: PRODUCT USED FOR UNKNOWN INDICATION
     Dosage: 1 DF, QD
     Route: 058
     Dates: start: 20070317, end: 20070320
  6. EUPRESSYL [URAPIDIL] [Suspect]
     Active Substance: URAPIDIL
     Indication: PRODUCT USED FOR UNKNOWN INDICATION
     Dosage: UNK UNK, UNK
     Route: 042
     Dates: start: 20070317, end: 20070320

REACTIONS (2)
  - Nervous system disorder [Fatal]
  - Coma [Fatal]
